FAERS Safety Report 19141610 (Version 12)
Quarter: 2021Q3

REPORT INFORMATION
  Report Type: Report from Study
  Country: None (occurrence: FR)
  Receive Date: 20210415
  Receipt Date: 20210726
  Transmission Date: 20211014
  Serious: Yes (Other)
  Sender: FDA-Public Use
  Company Number: FR-ABBVIE-21K-056-3861636-00

PATIENT
  Age: 70 Year
  Sex: Male

DRUGS (10)
  1. DUODOPA [Suspect]
     Active Substance: CARBIDOPA\LEVODOPA
     Dosage: 4.8ML / H
     Route: 050
     Dates: start: 202104, end: 2021
  2. MODOPAR [Concomitant]
     Active Substance: BENSERAZIDE HYDROCHLORIDE\LEVODOPA
     Indication: PRODUCT USED FOR UNKNOWN INDICATION
     Dosage: IN THE MORNING
     Dates: start: 202104
  3. STALEVO [Concomitant]
     Active Substance: CARBIDOPA\ENTACAPONE\LEVODOPA
     Indication: PARKINSON^S DISEASE
     Dates: start: 2021
  4. CLOZAPINE. [Concomitant]
     Active Substance: CLOZAPINE
  5. DUODOPA [Suspect]
     Active Substance: CARBIDOPA\LEVODOPA
     Dosage: MD 5.8 ML,MORNING CONTINUOUS FLOW RATE 4.8 ML/H,CONTINUOUS FLOW RATE AROUND 12 PM 4.6 ML/H
     Route: 050
     Dates: start: 2021, end: 202106
  6. DUODOPA [Suspect]
     Active Substance: CARBIDOPA\LEVODOPA
     Dosage: MORNING DOSE 3.5ML; FLOW RATE 3.6ML/H FROM 7H TILL 20H
     Route: 050
     Dates: start: 202106
  7. DUODOPA [Suspect]
     Active Substance: CARBIDOPA\LEVODOPA
     Indication: PARKINSON^S DISEASE
     Route: 050
     Dates: start: 2021, end: 2021
  8. DUODOPA [Suspect]
     Active Substance: CARBIDOPA\LEVODOPA
     Dosage: MORNING DOSE 4 ML
     Route: 050
     Dates: start: 2021, end: 202104
  9. CLOZAPINE. [Concomitant]
     Active Substance: CLOZAPINE
     Indication: PRODUCT USED FOR UNKNOWN INDICATION
     Dosage: 1.5 TABLETS IN THE EVENING
  10. DUODOPA [Suspect]
     Active Substance: CARBIDOPA\LEVODOPA
     Dosage: 5.5 ML MORNING DOSE
     Route: 050
     Dates: start: 202104, end: 202104

REACTIONS (25)
  - Dry mouth [Not Recovered/Not Resolved]
  - Balance disorder [Not Recovered/Not Resolved]
  - Behaviour disorder [Unknown]
  - Parkinsonian gait [Not Recovered/Not Resolved]
  - Middle insomnia [Not Recovered/Not Resolved]
  - Motor dysfunction [Unknown]
  - Initial insomnia [Unknown]
  - Fall [Not Recovered/Not Resolved]
  - Fatigue [Not Recovered/Not Resolved]
  - Dyskinesia [Not Recovered/Not Resolved]
  - Dysarthria [Not Recovered/Not Resolved]
  - Toe walking [Not Recovered/Not Resolved]
  - Arthralgia [Unknown]
  - Movement disorder [Not Recovered/Not Resolved]
  - Hallucination, visual [Not Recovered/Not Resolved]
  - Unevaluable event [Not Recovered/Not Resolved]
  - Weight decreased [Unknown]
  - Unevaluable event [Unknown]
  - Walking aid user [Not Recovered/Not Resolved]
  - Camptocormia [Not Recovered/Not Resolved]
  - Dyskinesia [Recovered/Resolved]
  - Impatience [Not Recovered/Not Resolved]
  - Pain in extremity [Not Recovered/Not Resolved]
  - Freezing phenomenon [Not Recovered/Not Resolved]
  - Abnormal dreams [Unknown]

NARRATIVE: CASE EVENT DATE: 2021
